FAERS Safety Report 18869926 (Version 5)
Quarter: 2021Q2

REPORT INFORMATION
  Report Type: Spontaneous
  Country: US (occurrence: US)
  Receive Date: 20210210
  Receipt Date: 20210624
  Transmission Date: 20210717
  Serious: No
  Sender: FDA-Public Use
  Company Number: US-DSJP-DSU-2021-103573

PATIENT
  Age: 68 Year
  Sex: Female

DRUGS (5)
  1. HYDROCODONE [Concomitant]
     Active Substance: HYDROCODONE
     Indication: PAIN
     Dosage: UNK Q4?6 H
     Route: 048
     Dates: start: 20200911
  2. ENHERTU [Suspect]
     Active Substance: FAM-TRASTUZUMAB DERUXTECAN-NXKI
     Dosage: UNK, ONCE EVERY 3 WK
     Route: 042
     Dates: start: 20200914
  3. ONDANSETRON [Concomitant]
     Active Substance: ONDANSETRON
     Indication: NAUSEA
     Dosage: UNK(Q8H) AS NEEDED
     Route: 048
     Dates: start: 20201210
  4. ENHERTU [Suspect]
     Active Substance: FAM-TRASTUZUMAB DERUXTECAN-NXKI
     Indication: BREAST CANCER
     Dosage: 310 MG, ONCE EVERY 3 WK
     Route: 042
     Dates: start: 20200910
  5. ENHERTU [Suspect]
     Active Substance: FAM-TRASTUZUMAB DERUXTECAN-NXKI
     Dosage: 310 MG, ONCE EVERY 3 WK
     Route: 042
     Dates: start: 20201001, end: 20210617

REACTIONS (3)
  - Nausea [Not Recovered/Not Resolved]
  - Constipation [Recovered/Resolved]
  - Alopecia [Not Recovered/Not Resolved]

NARRATIVE: CASE EVENT DATE: 20210311
